FAERS Safety Report 7294475-0 (Version None)
Quarter: 2011Q1

REPORT INFORMATION
  Report Type: 
  Country: None (occurrence: None)
  Receive Date: 20110216
  Receipt Date: 20110208
  Transmission Date: 20110831
  Serious: Yes (Hospitalization)
  Sender: FDA-Public Use
  Company Number: US-BIOGENIDEC-2011BI004898

PATIENT
  Age: 39 Year
  Sex: Male

DRUGS (11)
  1. BETACAROTENE [Concomitant]
  2. CRESTOR [Concomitant]
     Route: 048
  3. ASCORBIC ACID [Concomitant]
  4. LACTOBACILLUS [Concomitant]
  5. HYZAAR [Concomitant]
  6. VITAMIN D [Concomitant]
  7. VITAMIN E [Concomitant]
  8. FISH OIL [Concomitant]
  9. TYSABRI [Suspect]
     Indication: MULTIPLE SCLEROSIS
     Route: 042
     Dates: start: 20091015, end: 20110111
  10. CENTRUM [Concomitant]
  11. LASIX [Concomitant]

REACTIONS (1)
  - ABSCESS JAW [None]
